FAERS Safety Report 7745156-8 (Version None)
Quarter: 2011Q3

REPORT INFORMATION
  Report Type: 
  Country: None (occurrence: None)
  Receive Date: 20110907
  Receipt Date: 20110823
  Transmission Date: 20111222
  Serious: Yes (Other)
  Sender: FDA-Public Use
  Company Number: 11-060

PATIENT
  Age: 58 Year
  Sex: Female

DRUGS (2)
  1. CEFUROXIME AXETIL [Suspect]
     Indication: SINUSITIS
     Dosage: 500 MG, BID, PO
     Route: 048
     Dates: start: 20110803, end: 20110803
  2. CEFUROXIME AXETIL [Suspect]
     Indication: SINUSITIS
     Dosage: 500 MG, BID, PO
     Route: 048
     Dates: start: 20110718, end: 20110728

REACTIONS (16)
  - OEDEMA PERIPHERAL [None]
  - HYPERHIDROSIS [None]
  - PRODUCT SUBSTITUTION ISSUE [None]
  - RASH PRURITIC [None]
  - OCULAR HYPERAEMIA [None]
  - WHITE BLOOD CELL COUNT INCREASED [None]
  - MALAISE [None]
  - SWELLING FACE [None]
  - ERYTHEMA [None]
  - HEART RATE INCREASED [None]
  - BODY TEMPERATURE INCREASED [None]
  - TREMOR [None]
  - DIZZINESS [None]
  - CHILLS [None]
  - HEADACHE [None]
  - RASH ERYTHEMATOUS [None]
